FAERS Safety Report 11220135 (Version 1)
Quarter: 2015Q2

REPORT INFORMATION
  Report Type: Spontaneous
  Country: US (occurrence: US)
  Receive Date: 20150625
  Receipt Date: 20150625
  Transmission Date: 20150821
  Serious: Yes (Other)
  Sender: FDA-Public Use
  Company Number: US-BAUSCH-BL-2015-015703

PATIENT
  Sex: Female
  Weight: 65.83 kg

DRUGS (1)
  1. LOTEPREDNOL ETABONATE OPHTHALMIC OINTMENT 0.5% [Suspect]
     Active Substance: LOTEPREDNOL ETABONATE
     Indication: DRY SKIN
     Route: 061
     Dates: start: 2012

REACTIONS (2)
  - Off label use [Not Recovered/Not Resolved]
  - Angle closure glaucoma [Unknown]

NARRATIVE: CASE EVENT DATE: 2012
